FAERS Safety Report 23030915 (Version 1)
Quarter: 2023Q4

REPORT INFORMATION
  Report Type: Spontaneous
  Country: US (occurrence: US)
  Receive Date: 20231005
  Receipt Date: 20231005
  Transmission Date: 20240110
  Serious: Yes (Other)
  Sender: FDA-Public Use
  Company Number: US-ChurchDwight-2023-CDW-01554

PATIENT

DRUGS (1)
  1. PURE BAKING SODA [Suspect]
     Active Substance: SODIUM BICARBONATE
     Indication: Product used for unknown indication
     Route: 048

REACTIONS (2)
  - Blindness unilateral [Not Recovered/Not Resolved]
  - Accidental exposure to product [Unknown]
